FAERS Safety Report 7357269-3 (Version None)
Quarter: 2011Q1

REPORT INFORMATION
  Report Type: 
  Country: None (occurrence: None)
  Receive Date: 20110317
  Receipt Date: 20110309
  Transmission Date: 20110831
  Serious: Yes (Hospitalization, Other)
  Sender: FDA-Public Use
  Company Number: JP-ASTELLAS-2011JP001725

PATIENT
  Age: 37 Year
  Sex: Female
  Weight: 52 kg

DRUGS (9)
  1. ITRACONAZOLE [Concomitant]
     Dosage: 100 MG, UNKNOWN/D
     Route: 048
     Dates: start: 20090701
  2. LANSOPRAZOLE [Concomitant]
     Dosage: 30 MG, UNKNOWN/D
     Route: 048
     Dates: start: 20081101
  3. PREDNISOLONE [Concomitant]
     Dosage: 5 MG, UNKNOWN/D
     Route: 048
     Dates: start: 20091030
  4. PROGRAF [Suspect]
     Indication: PROPHYLAXIS AGAINST GRAFT VERSUS HOST DISEASE
     Dosage: 3 MG, UNKNOWN/D
     Route: 048
  5. CYCLOSPORINE [Concomitant]
     Indication: PROPHYLAXIS AGAINST GRAFT VERSUS HOST DISEASE
     Route: 065
  6. PREDNISOLONE [Concomitant]
     Dosage: 30 MG, UNKNOWN/D
     Route: 048
     Dates: start: 20100204
  7. PREDNISOLONE [Concomitant]
     Indication: PROPHYLAXIS AGAINST GRAFT VERSUS HOST DISEASE
     Dosage: 20 MG, UNKNOWN/D
     Route: 048
  8. METHOTREXATE [Concomitant]
     Indication: PROPHYLAXIS AGAINST GRAFT VERSUS HOST DISEASE
     Route: 065
  9. PREDNISOLONE [Concomitant]
     Dosage: 60 MG, UNKNOWN/D
     Route: 048

REACTIONS (4)
  - EOSINOPHILIC PNEUMONIA [None]
  - DRUG INEFFECTIVE [None]
  - HERPES ZOSTER [None]
  - ACUTE GRAFT VERSUS HOST DISEASE IN SKIN [None]
